FAERS Safety Report 9343915 (Version 1)
Quarter: 2013Q2

REPORT INFORMATION
  Report Type: Spontaneous
  Country: US (occurrence: US)
  Receive Date: 20130612
  Receipt Date: 20130612
  Transmission Date: 20140414
  Serious: Yes (Hospitalization)
  Sender: FDA-Public Use
  Company Number: US-ASTRAZENECA-2013SE09711

PATIENT
  Age: 83 Year
  Sex: Female

DRUGS (1)
  1. NEXIUM [Suspect]
     Indication: HIATUS HERNIA
     Route: 048

REACTIONS (8)
  - Hiatus hernia [Unknown]
  - Decreased appetite [Unknown]
  - Dysphagia [Unknown]
  - Adverse event [Unknown]
  - Regurgitation [Unknown]
  - Regurgitation [Unknown]
  - Malaise [Unknown]
  - Drug dose omission [Unknown]
